FAERS Safety Report 17978332 (Version 1)
Quarter: 2020Q3

REPORT INFORMATION
  Report Type: Spontaneous
  Country: US (occurrence: US)
  Receive Date: 20200703
  Receipt Date: 20200703
  Transmission Date: 20201103
  Serious: Yes (Hospitalization)
  Sender: FDA-Public Use
  Company Number: US-MYLANLABS-2020M1059901

PATIENT
  Age: 20 Year
  Sex: Male

DRUGS (1)
  1. CLONAZEPAM. [Suspect]
     Active Substance: CLONAZEPAM
     Indication: PRODUCT USED FOR UNKNOWN INDICATION
     Dosage: 2 DOSAGE FORM,HE WAS PRESCRIBED ONE TABLET AT A TIME, BUT INSTEAD TOOK 2 TABLETS AN HOUR BEFORE THE
     Route: 065

REACTIONS (4)
  - Coordination abnormal [Unknown]
  - Impaired driving ability [Unknown]
  - Intentional product misuse [Unknown]
  - Road traffic accident [Unknown]
